FAERS Safety Report 9010192 (Version 1)
Quarter: 2013Q1

REPORT INFORMATION
  Report Type: Spontaneous
  Country: US (occurrence: US)
  Receive Date: 20130110
  Receipt Date: 20130110
  Transmission Date: 20140127
  Serious: Yes (Hospitalization, Other)
  Sender: FDA-Public Use
  Company Number: US-SANOFI-AVENTIS-2013SA000153

PATIENT
  Age: 65 Year
  Sex: Male

DRUGS (6)
  1. PLAVIX [Suspect]
     Route: 048
  2. ASPIRIN [Suspect]
     Route: 048
  3. INTERFERON [Suspect]
     Indication: RELAPSING-REMITTING MULTIPLE SCLEROSIS
     Route: 058
     Dates: start: 20100921
  4. NITRO PATCH [Concomitant]
  5. CARBAMAZEPINE [Concomitant]
     Indication: CONVULSION
     Route: 048
  6. ZOCOR [Concomitant]
     Route: 048

REACTIONS (9)
  - Arrhythmia [Unknown]
  - Haemoptysis [Not Recovered/Not Resolved]
  - Dyspnoea [Not Recovered/Not Resolved]
  - Amnesia [Unknown]
  - Eye pain [Not Recovered/Not Resolved]
  - Asthenia [Not Recovered/Not Resolved]
  - Vision blurred [Not Recovered/Not Resolved]
  - Pain [Not Recovered/Not Resolved]
  - Pyrexia [Not Recovered/Not Resolved]
